FAERS Safety Report 19245256 (Version 1)
Quarter: 2021Q2

REPORT INFORMATION
  Report Type: Spontaneous
  Country: FR (occurrence: FR)
  Receive Date: 20210512
  Receipt Date: 20210512
  Transmission Date: 20210717
  Serious: Yes (Other)
  Sender: FDA-Public Use
  Company Number: FR-JNJFOC-20210517456

PATIENT
  Age: 70 Year

DRUGS (1)
  1. XARELTO [Suspect]
     Active Substance: RIVAROXABAN
     Indication: ATRIAL FIBRILLATION
     Dosage: 20 MG
     Route: 048
     Dates: start: 2017, end: 20210504

REACTIONS (3)
  - Anaemia [Unknown]
  - Colon cancer [Unknown]
  - Colon cancer recurrent [Unknown]

NARRATIVE: CASE EVENT DATE: 2018
